FAERS Safety Report 15914590 (Version 1)
Quarter: 2019Q1

REPORT INFORMATION
  Report Type: Spontaneous
  Country: US (occurrence: US)
  Receive Date: 20190114
  Receipt Date: 20190114
  Transmission Date: 20190417
  Serious: No
  Sender: FDA-Public Use
  Company Number: None

PATIENT
  Age: 48 Year
  Sex: Female

DRUGS (1)
  1. PREDNISONE TAB 20MG [Suspect]
     Active Substance: PREDNISONE
     Route: 048
     Dates: start: 201901

REACTIONS (1)
  - Insomnia [None]

NARRATIVE: CASE EVENT DATE: 20190112
